FAERS Safety Report 5409380-1 (Version None)
Quarter: 2007Q3

REPORT INFORMATION
  Report Type: 
  Country: None (occurrence: None)
  Receive Date: 20070807
  Receipt Date: 20070807
  Transmission Date: 20080115
  Serious: Yes (Other)
  Sender: FDA-Public Use
  Company Number: None

PATIENT
  Age: 50 Year
  Sex: Female
  Weight: 72.5755 kg

DRUGS (1)
  1. PHENYTOIN [Suspect]
     Indication: CONVULSION
     Dosage: TAKE 3 CAPSULES DAILY AT BEDTIME
     Dates: start: 20070101

REACTIONS (2)
  - DRUG LEVEL CHANGED [None]
  - PHARMACEUTICAL PRODUCT COMPLAINT [None]
